FAERS Safety Report 19956991 (Version 2)
Quarter: 2021Q4

REPORT INFORMATION
  Report Type: Spontaneous
  Country: US (occurrence: US)
  Receive Date: 20211014
  Receipt Date: 20211022
  Transmission Date: 20220303
  Serious: No
  Sender: FDA-Public Use
  Company Number: US-AMGEN-USASP2021156927

PATIENT
  Sex: Male

DRUGS (1)
  1. REPATHA [Suspect]
     Active Substance: EVOLOCUMAB
     Indication: Product used for unknown indication
     Dosage: UNK UNK, Q2WK
     Route: 065

REACTIONS (2)
  - Injection site rash [Unknown]
  - Rash macular [Unknown]

NARRATIVE: CASE EVENT DATE: 20210101
